FAERS Safety Report 9419788 (Version 2)
Quarter: 2013Q3

REPORT INFORMATION
  Report Type: Spontaneous
  Country: US (occurrence: None)
  Receive Date: 20130723
  Receipt Date: 20130726
  Transmission Date: 20140515
  Serious: Yes (Other)
  Sender: FDA-Public Use
  Company Number: M-13-037

PATIENT
  Sex: 0

DRUGS (2)
  1. TRIAMTERENE AND HYDROCHLOROTHIAZIDE [Suspect]
     Indication: HYPERTENSION
     Dosage: 1X DAILY
  2. LOTREL [Concomitant]

REACTIONS (9)
  - Pollakiuria [None]
  - Dizziness [None]
  - Fall [None]
  - Ligament disorder [None]
  - Contusion [None]
  - Ligament sprain [None]
  - Product dosage form issue [None]
  - Balance disorder [None]
  - Chills [None]
